FAERS Safety Report 10346326 (Version 2)
Quarter: 2014Q3

REPORT INFORMATION
  Report Type: Report from Study
  Country: CA (occurrence: CA)
  Receive Date: 20140728
  Receipt Date: 20140728
  Transmission Date: 20150326
  Serious: Yes (Other)
  Sender: FDA-Public Use
  Company Number: CA-ABBVIE-11P-028-0724311-00

PATIENT
  Age: 46 Year
  Sex: Female
  Weight: 58.11 kg

DRUGS (1)
  1. HUMIRA [Suspect]
     Active Substance: ADALIMUMAB
     Indication: CROHN^S DISEASE
     Route: 058
     Dates: start: 20101225, end: 20110429

REACTIONS (14)
  - Impaired healing [Not Recovered/Not Resolved]
  - Burning sensation [Not Recovered/Not Resolved]
  - Mood altered [Not Recovered/Not Resolved]
  - Melanocytic naevus [Not Recovered/Not Resolved]
  - Acne [Not Recovered/Not Resolved]
  - Loss of consciousness [Unknown]
  - Hypoaesthesia [Not Recovered/Not Resolved]
  - Anger [Not Recovered/Not Resolved]
  - Large intestinal stenosis [Recovered/Resolved]
  - Nasal congestion [Not Recovered/Not Resolved]
  - Pharyngeal oedema [Not Recovered/Not Resolved]
  - Impaired healing [Not Recovered/Not Resolved]
  - Memory impairment [Not Recovered/Not Resolved]
  - Weight decreased [Recovering/Resolving]

NARRATIVE: CASE EVENT DATE: 201101
